FAERS Safety Report 10554916 (Version 5)
Quarter: 2015Q1

REPORT INFORMATION
  Report Type: Spontaneous
  Country: US (occurrence: US)
  Receive Date: 20141030
  Receipt Date: 20150108
  Transmission Date: 20150720
  Serious: No
  Sender: FDA-Public Use
  Company Number: US-GLAXOSMITHKLINE-A1088801A

PATIENT

DRUGS (2)
  1. VOTRIENT [Suspect]
     Active Substance: PAZOPANIB HYDROCHLORIDE
     Indication: RENAL CANCER
     Dosage: 800 MG, 1D
     Route: 065
     Dates: start: 20140812, end: 20141117
  2. VOTRIENT [Suspect]
     Active Substance: PAZOPANIB HYDROCHLORIDE
     Indication: MALIGNANT URINARY TRACT NEOPLASM
     Dosage: 400 MG, QD
     Dates: start: 20141118

REACTIONS (5)
  - Blister [Recovered/Resolved]
  - Drug dose omission [Unknown]
  - Diarrhoea [Unknown]
  - Erythema [Unknown]
  - Rash [Unknown]
